FAERS Safety Report 16499537 (Version 1)
Quarter: 2019Q3

REPORT INFORMATION
  Report Type: Report from Study
  Country: CA (occurrence: CA)
  Receive Date: 20190701
  Receipt Date: 20190701
  Transmission Date: 20191004
  Serious: Yes (Other)
  Sender: FDA-Public Use
  Company Number: CA-ROCHE-1687429

PATIENT
  Age: 68 Year
  Sex: Female
  Weight: 87 kg

DRUGS (5)
  1. ACTEMRA [Suspect]
     Active Substance: TOCILIZUMAB
     Route: 042
     Dates: start: 20180313
  2. HYDROCHLOROTHIAZIDE. [Concomitant]
     Active Substance: HYDROCHLOROTHIAZIDE
  3. AMLODIPINE [Concomitant]
     Active Substance: AMLODIPINE BESYLATE
  4. SANDOZ VALSARTAN HCT [Concomitant]
     Active Substance: HYDROCHLOROTHIAZIDE\VALSARTAN
  5. ACTEMRA [Suspect]
     Active Substance: TOCILIZUMAB
     Indication: RHEUMATOID ARTHRITIS
     Route: 042
     Dates: start: 20151029, end: 20190527

REACTIONS (26)
  - Blood pressure increased [Unknown]
  - Nasopharyngitis [Recovered/Resolved]
  - Body temperature decreased [Unknown]
  - Nasopharyngitis [Recovered/Resolved]
  - Rheumatoid arthritis [Unknown]
  - Oropharyngeal pain [Recovered/Resolved]
  - Weight decreased [Unknown]
  - Disability assessment scale score increased [Recovering/Resolving]
  - Pain [Unknown]
  - Upper limb fracture [Not Recovered/Not Resolved]
  - Oropharyngeal pain [Not Recovered/Not Resolved]
  - Influenza [Not Recovered/Not Resolved]
  - Dyspnoea [Not Recovered/Not Resolved]
  - Ear disorder [Recovered/Resolved]
  - Mass [Unknown]
  - Chest pain [Unknown]
  - Weight increased [Recovered/Resolved]
  - Heart rate decreased [Unknown]
  - Pain in extremity [Not Recovered/Not Resolved]
  - Bronchitis [Unknown]
  - Cough [Not Recovered/Not Resolved]
  - Joint stiffness [Unknown]
  - Oxygen saturation decreased [Unknown]
  - Condition aggravated [Unknown]
  - Blood pressure systolic increased [Unknown]
  - Arthralgia [Unknown]

NARRATIVE: CASE EVENT DATE: 20151230
